FAERS Safety Report 6266359-8 (Version None)
Quarter: 2009Q3

REPORT INFORMATION
  Report Type: 
  Country: None (occurrence: None)
  Receive Date: 20090713
  Receipt Date: 20090622
  Transmission Date: 20100115
  Serious: Yes (Death, Life-Threatening, Other)
  Sender: FDA-Public Use
  Company Number: BE-PFIZER INC-2008080582

PATIENT
  Age: 33 Year

DRUGS (38)
  1. BLINDED *NO SUBJECT DRUG [Suspect]
     Indication: SYSTEMIC CANDIDA
     Dosage: 200 MG, UNK
     Route: 042
     Dates: start: 20080908, end: 20080908
  2. BLINDED *PLACEBO [Suspect]
     Indication: SYSTEMIC CANDIDA
     Dosage: 200 MG, UNK
     Route: 042
     Dates: start: 20080908, end: 20080908
  3. BLINDED ANIDULAFUNGIN [Suspect]
     Indication: SYSTEMIC CANDIDA
     Dosage: 200 MG, UNK
     Route: 042
     Dates: start: 20080908, end: 20080908
  4. BLINDED *NO SUBJECT DRUG [Suspect]
     Indication: ASPERGILLOSIS
     Dosage: UNK
     Route: 042
     Dates: start: 20080909, end: 20080916
  5. BLINDED *PLACEBO [Suspect]
     Indication: ASPERGILLOSIS
     Dosage: UNK
     Route: 042
     Dates: start: 20080909, end: 20080916
  6. BLINDED ANIDULAFUNGIN [Suspect]
     Indication: ASPERGILLOSIS
     Dosage: UNK
     Route: 042
     Dates: start: 20080909, end: 20080916
  7. VFEND [Suspect]
     Indication: ASPERGILLOSIS
     Route: 042
     Dates: start: 20080908, end: 20080908
  8. VFEND [Suspect]
     Route: 042
     Dates: start: 20080909, end: 20080909
  9. VFEND [Suspect]
     Route: 042
     Dates: start: 20080910, end: 20080916
  10. VFEND [Suspect]
     Route: 042
     Dates: start: 20080917, end: 20080917
  11. DEXTROSE 5% [Concomitant]
     Route: 042
     Dates: start: 20080903
  12. SODIUM CHLORIDE [Concomitant]
     Route: 042
     Dates: start: 20080903
  13. MAGNESIUM SULFATE [Concomitant]
     Route: 042
     Dates: start: 20080904, end: 20081006
  14. NULYTELY [Concomitant]
     Route: 048
     Dates: start: 20080905, end: 20080905
  15. REDOXON [Concomitant]
     Route: 042
     Dates: start: 20080908, end: 20081006
  16. TOCOPHEROL CONCENTRATE CAP [Concomitant]
     Route: 048
     Dates: start: 20080908, end: 20081002
  17. KONAKION [Concomitant]
     Route: 042
     Dates: start: 20080908, end: 20081006
  18. FOLAVIT [Concomitant]
     Route: 048
     Dates: start: 20080904, end: 20080923
  19. POTASSIUM CHLORIDE [Concomitant]
     Route: 042
     Dates: start: 20080906, end: 20080928
  20. MERONEM [Concomitant]
     Route: 042
     Dates: start: 20080903, end: 20080916
  21. VANCOMYCIN HCL [Concomitant]
     Route: 042
     Dates: start: 20080904, end: 20080916
  22. DIFLUCAN [Concomitant]
     Route: 048
     Dates: start: 20080903, end: 20080908
  23. VFEND [Concomitant]
     Route: 042
     Dates: start: 20080908, end: 20080917
  24. ZOVIRAX [Concomitant]
     Route: 042
     Dates: start: 20080905, end: 20080917
  25. DOCACICLO [Concomitant]
     Route: 048
     Dates: start: 20080903, end: 20080904
  26. MORPHINE SULFATE [Concomitant]
     Route: 048
     Dates: start: 20080903, end: 20080923
  27. PARACETAMOL [Concomitant]
     Route: 042
     Dates: start: 20080903, end: 20080926
  28. XANAX [Concomitant]
     Route: 048
     Dates: start: 20080908
  29. REDOMEX [Concomitant]
     Route: 048
     Dates: start: 20080903, end: 20081007
  30. DUOVENT [Concomitant]
     Route: 055
     Dates: start: 20080906, end: 20080910
  31. PARACODINE [Concomitant]
     Route: 048
     Dates: start: 20080903, end: 20081007
  32. LONGIFENE [Concomitant]
     Route: 048
     Dates: start: 20080908, end: 20081007
  33. VALIUM [Concomitant]
     Route: 042
     Dates: start: 20080912, end: 20080916
  34. ALL OTHER THERAPEUTIC PRODUCTS [Concomitant]
     Dates: start: 20080911, end: 20080923
  35. FOSCAVIR [Concomitant]
     Route: 042
     Dates: start: 20080911
  36. PROMETHAZINE [Concomitant]
     Route: 042
     Dates: start: 20080912, end: 20080923
  37. ALBUMIN (HUMAN) [Concomitant]
     Route: 042
     Dates: start: 20080915
  38. NEUPOGEN [Concomitant]
     Route: 042
     Dates: start: 20080915

REACTIONS (2)
  - BLINDNESS [None]
  - BRONCHOPULMONARY ASPERGILLOSIS [None]
